FAERS Safety Report 20970479 (Version 3)
Quarter: 2022Q3

REPORT INFORMATION
  Report Type: Spontaneous
  Country: US (occurrence: US)
  Receive Date: 20220616
  Receipt Date: 20220708
  Transmission Date: 20221027
  Serious: Yes (Other)
  Sender: FDA-Public Use
  Company Number: US-SA-SAC20220607001206

PATIENT
  Age: 51 Year
  Sex: Female

DRUGS (5)
  1. DUPIXENT [Suspect]
     Active Substance: DUPILUMAB
     Indication: Dermatitis atopic
     Dosage: 300 MG, QOW
     Route: 058
  2. DOXYCYCLINE HYCLATE [Concomitant]
     Active Substance: DOXYCYCLINE HYCLATE
  3. PREDNISONE [Concomitant]
     Active Substance: PREDNISONE
     Dosage: 100 MG
  4. KEFLEX [Concomitant]
     Active Substance: CEPHALEXIN
  5. CEPHALEXIN [Concomitant]
     Active Substance: CEPHALEXIN

REACTIONS (2)
  - Nephrolithiasis [Unknown]
  - Surgery [Unknown]

NARRATIVE: CASE EVENT DATE: 20220601
